FAERS Safety Report 7557658-8 (Version None)
Quarter: 2011Q2

REPORT INFORMATION
  Report Type: 
  Country: None (occurrence: None)
  Receive Date: 20110620
  Receipt Date: 20110613
  Transmission Date: 20111010
  Serious: Yes (Hospitalization, Other)
  Sender: FDA-Public Use
  Company Number: US-PFIZER INC-2011114102

PATIENT
  Sex: Male
  Weight: 104.31 kg

DRUGS (4)
  1. GEODON [Suspect]
     Dosage: 40 MG, 2X/DAY
     Dates: start: 20100101
  2. SOMA [Concomitant]
  3. AMBIEN [Concomitant]
     Dosage: 10 MG, 1X/DAY, HS
  4. ALBUTEROL SULFATE AUTOHALER [Concomitant]
     Indication: ASTHMA

REACTIONS (8)
  - HYPERSENSITIVITY [None]
  - HYPERTENSION [None]
  - CEREBROVASCULAR ACCIDENT [None]
  - DYSPNOEA [None]
  - DYSPHAGIA [None]
  - ANXIETY [None]
  - THROAT TIGHTNESS [None]
  - MUSCLE SPASMS [None]
